FAERS Safety Report 8996052 (Version 1)
Quarter: 2013Q1

REPORT INFORMATION
  Report Type: Spontaneous
  Country: US (occurrence: US)
  Receive Date: 20130103
  Receipt Date: 20130103
  Transmission Date: 20140127
  Serious: No
  Sender: FDA-Public Use
  Company Number: US-ABBOTT-12P-163-0941765-00

PATIENT
  Sex: Female
  Weight: 81.72 kg

DRUGS (8)
  1. SYNTHROID [Suspect]
     Indication: HYPOTHYROIDISM
     Dates: start: 2002
  2. SYNTHROID [Suspect]
     Dates: start: 1955, end: 2002
  3. ASPIRIN [Concomitant]
     Indication: PRODUCT USED FOR UNKNOWN INDICATION
  4. EXFORGE [Concomitant]
     Indication: HYPERTENSION
  5. BYSTOLIC [Concomitant]
     Indication: HYPERTENSION
  6. NORVASC [Concomitant]
     Indication: HYPERTENSION
  7. LORAZEPAM [Concomitant]
     Indication: ANXIETY
  8. POTASSIUM CHLORIDE [Concomitant]
     Indication: PRODUCT USED FOR UNKNOWN INDICATION

REACTIONS (4)
  - Decreased appetite [Not Recovered/Not Resolved]
  - Somnolence [Not Recovered/Not Resolved]
  - Muscle spasms [Not Recovered/Not Resolved]
  - Muscular weakness [Not Recovered/Not Resolved]
